FAERS Safety Report 24362956 (Version 2)
Quarter: 2024Q4

REPORT INFORMATION
  Report Type: Spontaneous
  Country: US (occurrence: US)
  Receive Date: 20240925
  Receipt Date: 20241001
  Transmission Date: 20250115
  Serious: Yes (Hospitalization, Other)
  Sender: PFIZER
  Company Number: US-PFIZER INC-PV202400098464

PATIENT
  Age: 35 Year
  Sex: Male
  Weight: 80 kg

DRUGS (4)
  1. LORBRENA [Suspect]
     Active Substance: LORLATINIB
     Indication: Adenocarcinoma
     Dosage: TAKE WITH OR WITHOUT FOOD, DO NOT CRUSH, CHEW, OR DISSOLVE, SWALLOW TABLET WHOLE
     Route: 048
     Dates: start: 20240720, end: 20240910
  2. LORBRENA [Suspect]
     Active Substance: LORLATINIB
     Indication: Lung neoplasm malignant
     Dosage: TAKE 3 TABLETS (75 MG TOTAL) BY MOUTH 1 (ONE) TIME EACH DAY
     Route: 048
  3. LORBRENA [Suspect]
     Active Substance: LORLATINIB
     Indication: Anaplastic lymphoma kinase gene mutation
     Dosage: 100 MG, ALTERNATE DAY
  4. LORBRENA [Suspect]
     Active Substance: LORLATINIB
     Dosage: 25MG TAKE 3 TABLETS (75MG TOTAL) ONCE DAILY

REACTIONS (5)
  - Pancreatitis [Unknown]
  - Mental impairment [Unknown]
  - Gastrointestinal disorder [Unknown]
  - Inflammation [Unknown]
  - Off label use [Unknown]

NARRATIVE: CASE EVENT DATE: 20240901
